FAERS Safety Report 13763612 (Version 1)
Quarter: 2017Q3

REPORT INFORMATION
  Report Type: Spontaneous
  Country: FR (occurrence: FR)
  Receive Date: 20170718
  Receipt Date: 20170718
  Transmission Date: 20171127
  Serious: Yes (Other)
  Sender: FDA-Public Use
  Company Number: FR-BAYER-2017-133913

PATIENT
  Age: 35 Year
  Sex: Female

DRUGS (1)
  1. MIRENA [Suspect]
     Active Substance: LEVONORGESTREL
     Indication: CONTRACEPTION
     Dosage: 20 MCG/24HR, CONT
     Route: 015
     Dates: start: 20160405, end: 20170303

REACTIONS (12)
  - Alopecia [Unknown]
  - Migraine [Unknown]
  - Breast cyst [Unknown]
  - Tachycardia [Unknown]
  - Fatigue [Unknown]
  - Paraesthesia [Unknown]
  - Irritability [Unknown]
  - Visual impairment [Unknown]
  - Discomfort [Unknown]
  - Weight increased [Unknown]
  - Acne [Unknown]
  - Nausea [Unknown]

NARRATIVE: CASE EVENT DATE: 201704
